FAERS Safety Report 14855829 (Version 3)
Quarter: 2018Q2

REPORT INFORMATION
  Report Type: Spontaneous
  Country: BR (occurrence: BR)
  Receive Date: 20180507
  Receipt Date: 20180516
  Transmission Date: 20180711
  Serious: Yes (Death, Hospitalization, Other)
  Sender: FDA-Public Use
  Company Number: BR-PFIZER INC-2018182268

PATIENT
  Age: 86 Year
  Sex: Male

DRUGS (7)
  1. AAS [Concomitant]
     Active Substance: ASPIRIN
     Dosage: UNK
  2. OLMETEC [Suspect]
     Active Substance: OLMESARTAN MEDOXOMIL
     Indication: HYPERTENSION
     Dosage: 1 TABLET PER DAY
  3. PRESSAT [Concomitant]
     Active Substance: AMLODIPINE BESYLATE
     Indication: HYPERTENSION
     Dosage: UNK
  4. LIPITOR [Suspect]
     Active Substance: ATORVASTATIN CALCIUM
     Indication: BLOOD CHOLESTEROL INCREASED
     Dosage: STRENGTH 20MG - HALF TABLET PER DAY, AT NIGHT
  5. LIPITOR [Suspect]
     Active Substance: ATORVASTATIN CALCIUM
     Dosage: ONE TABLET PER DAY (STRENGTH 20MG)
  6. VITAMINS NOS [Suspect]
     Active Substance: VITAMINS
  7. PRADAXA [Concomitant]
     Active Substance: DABIGATRAN ETEXILATE MESYLATE
     Indication: ANTICOAGULANT THERAPY
     Dosage: UNK

REACTIONS (5)
  - Fall [Recovered/Resolved]
  - Bedridden [Recovered/Resolved]
  - Infarction [Fatal]
  - Femur fracture [Recovering/Resolving]
  - Blood cholesterol increased [Recovered/Resolved]

NARRATIVE: CASE EVENT DATE: 201804
